FAERS Safety Report 17365594 (Version 1)
Quarter: 2020Q1

REPORT INFORMATION
  Report Type: Spontaneous
  Country: US (occurrence: US)
  Receive Date: 20200204
  Receipt Date: 20200204
  Transmission Date: 20200409
  Serious: No
  Sender: FDA-Public Use
  Company Number: US-GILEAD-2020-0449208

PATIENT
  Sex: Male

DRUGS (9)
  1. METOPROLOL SUCCINATE. [Concomitant]
     Active Substance: METOPROLOL SUCCINATE
  2. FAMOTIDINE. [Concomitant]
     Active Substance: FAMOTIDINE
  3. DIGOXIN. [Concomitant]
     Active Substance: DIGOXIN
  4. PANTOPRAZOLE SODIUM. [Concomitant]
     Active Substance: PANTOPRAZOLE SODIUM
  5. DILTIAZEM. [Concomitant]
     Active Substance: DILTIAZEM
  6. LACTULOSE. [Concomitant]
     Active Substance: LACTULOSE
  7. ELIQUIS [Concomitant]
     Active Substance: APIXABAN
  8. ASPIRIN [ACETYLSALICYLIC ACID] [Concomitant]
     Active Substance: ASPIRIN
  9. HARVONI [Suspect]
     Active Substance: LEDIPASVIR\SOFOSBUVIR
     Indication: CHRONIC HEPATITIS C
     Dosage: 1 DOSAGE FORM, QD
     Route: 048
     Dates: start: 201910

REACTIONS (1)
  - Product dose omission [Recovered/Resolved]
